FAERS Safety Report 20810331 (Version 2)
Quarter: 2022Q2

REPORT INFORMATION
  Report Type: Report from Study
  Country: US (occurrence: US)
  Receive Date: 20220510
  Receipt Date: 20220530
  Transmission Date: 20220720
  Serious: No
  Sender: FDA-Public Use
  Company Number: US-NOVARTISTESTPH-NVSC2022US106549

PATIENT
  Sex: Female

DRUGS (1)
  1. ENTRESTO [Suspect]
     Active Substance: SACUBITRIL\VALSARTAN
     Indication: Cardiac failure
     Dosage: 0.5 DOSAGE FORM, BID(24/26MG)
     Route: 048
     Dates: start: 20220505

REACTIONS (4)
  - Pain of skin [Unknown]
  - Dizziness [Unknown]
  - Wrong technique in product usage process [Unknown]
  - Prescribed underdose [Unknown]
